FAERS Safety Report 15688821 (Version 2)
Quarter: 2019Q2

REPORT INFORMATION
  Report Type: Spontaneous
  Country: CZ (occurrence: CZ)
  Receive Date: 20181205
  Receipt Date: 20190617
  Transmission Date: 20190711
  Serious: Yes (Hospitalization, Other)
  Sender: FDA-Public Use
  Company Number: CZ-ROCHE-2222457

PATIENT
  Age: 77 Year
  Sex: Female

DRUGS (1)
  1. ACTILYSE [Suspect]
     Active Substance: ALTEPLASE
     Indication: ISCHAEMIC STROKE
     Route: 042

REACTIONS (5)
  - Dyspnoea [Recovered/Resolved]
  - Cognitive disorder [Recovered/Resolved]
  - Localised oedema [Recovered/Resolved with Sequelae]
  - Dysphagia [Recovered/Resolved]
  - Face oedema [Recovered/Resolved with Sequelae]
